FAERS Safety Report 4297271-1 (Version None)
Quarter: 2004Q1

REPORT INFORMATION
  Report Type: 
  Country: None (occurrence: None)
  Receive Date: 20040213
  Receipt Date: 20040203
  Transmission Date: 20041129
  Serious: Yes (Hospitalization, Other)
  Sender: FDA-Public Use
  Company Number: 2004003393

PATIENT
  Sex: Female

DRUGS (8)
  1. ZOLOFT [Suspect]
     Indication: DEPRESSION
     Dosage: ORAL
     Route: 048
     Dates: end: 20031201
  2. GLIPIZIDE [Concomitant]
  3. ROSIGLITAZONE MALEATE (ROSIGLITAZONE MALEATE) [Concomitant]
  4. METFORMIN HCL [Concomitant]
  5. FUROSEMIDE [Concomitant]
  6. LOTREL [Concomitant]
  7. CELECOXIB (CELECOXIB) [Concomitant]
  8. GEMFIBROZIL [Concomitant]

REACTIONS (4)
  - BLOOD GLUCOSE FLUCTUATION [None]
  - CELLULITIS [None]
  - DEPRESSION [None]
  - DRUG INEFFECTIVE [None]
